FAERS Safety Report 19432833 (Version 1)
Quarter: 2021Q2

REPORT INFORMATION
  Report Type: Spontaneous
  Country: GB (occurrence: GB)
  Receive Date: 20210618
  Receipt Date: 20210618
  Transmission Date: 20210717
  Serious: Yes (Other)
  Sender: FDA-Public Use
  Company Number: GB-TEVA-2021-GB-1922082

PATIENT
  Age: 21 Year
  Sex: Male
  Weight: 101 kg

DRUGS (3)
  1. FLUCONAZOLE. [Suspect]
     Active Substance: FLUCONAZOLE
     Dosage: 50 MILLIGRAM DAILY; FOUR WEEKS THEN REVIEW WITH GP
     Route: 065
     Dates: start: 20210520
  2. HYDROCORTISONE. [Concomitant]
     Active Substance: HYDROCORTISONE
     Dosage: 2 DOSAGE FORMS DAILY; APPLY, UNIT DOSE : 1 DOSAGE FORMS
     Dates: start: 20210428, end: 20210512
  3. CLOBETASONE BUTYRATE [Concomitant]
     Active Substance: CLOBETASONE BUTYRATE
     Dosage: 2 DOSAGE FORMS DAILY; APPLY THINLY,UNIT DOSE : 1 DOSAGE FORMS
     Dates: start: 20210601

REACTIONS (2)
  - Drug hypersensitivity [Unknown]
  - Rash erythematous [Recovering/Resolving]

NARRATIVE: CASE EVENT DATE: 20210604
